FAERS Safety Report 12467858 (Version 1)
Quarter: 2016Q2

REPORT INFORMATION
  Report Type: Spontaneous
  Country: DE (occurrence: DE)
  Receive Date: 20160615
  Receipt Date: 20160615
  Transmission Date: 20160815
  Serious: Yes (Other)
  Sender: FDA-Public Use
  Company Number: DE-009507513-1606DEU005513

PATIENT
  Sex: Male

DRUGS (1)
  1. ATOZET 10 MG/20 MG [Suspect]
     Active Substance: ATORVASTATIN CALCIUM\EZETIMIBE
     Dosage: STRENGTH: 10 MG/ 20 MG
     Route: 048
     Dates: start: 2015

REACTIONS (1)
  - Granulomatosis with polyangiitis [Unknown]

NARRATIVE: CASE EVENT DATE: 201604
